FAERS Safety Report 25843916 (Version 1)
Quarter: 2025Q3

REPORT INFORMATION
  Report Type: Spontaneous
  Country: US (occurrence: US)
  Receive Date: 20250925
  Receipt Date: 20250925
  Transmission Date: 20251021
  Serious: Yes (Other)
  Sender: BRISTOL-MYERS SQUIBB COMPANY
  Company Number: US-BRISTOL-MYERS SQUIBB COMPANY-2025-129253

PATIENT
  Age: 23 Year
  Sex: Female

DRUGS (5)
  1. COBENFY [Suspect]
     Active Substance: TROSPIUM CHLORIDE\XANOMELINE
     Indication: Bipolar disorder
     Dates: start: 202504
  2. COBENFY [Suspect]
     Active Substance: TROSPIUM CHLORIDE\XANOMELINE
     Dosage: 100/20MG TWICE A DAY
  3. COBENFY [Suspect]
     Active Substance: TROSPIUM CHLORIDE\XANOMELINE
     Dosage: 50/20 MG
  4. LITHIUM [Suspect]
     Active Substance: LITHIUM
     Indication: Product used for unknown indication
  5. PROLIXIN [Suspect]
     Active Substance: FLUPHENAZINE HYDROCHLORIDE
     Indication: Product used for unknown indication

REACTIONS (7)
  - Somnolence [Unknown]
  - Agitation [Unknown]
  - Drooling [Unknown]
  - Depressed level of consciousness [Unknown]
  - Muscle twitching [Recovered/Resolved]
  - Parkinsonism [Unknown]
  - Off label use [Unknown]

NARRATIVE: CASE EVENT DATE: 20250401
